FAERS Safety Report 4607617-X (Version None)
Quarter: 2005Q1

REPORT INFORMATION
  Report Type: 
  Country: None (occurrence: None)
  Receive Date: 20050314
  Receipt Date: 20050302
  Transmission Date: 20050727
  Serious: Yes (Life-Threatening)
  Sender: FDA-Public Use
  Company Number: DE-JNJFOC-20050300605

PATIENT
  Sex: Male

DRUGS (2)
  1. RISPERDAL [Suspect]
     Route: 065
  2. HALDOL [Suspect]
     Route: 042

REACTIONS (5)
  - CYANOSIS [None]
  - EXTRAPYRAMIDAL DISORDER [None]
  - GAZE PALSY [None]
  - LARYNGOSPASM [None]
  - OROPHARYNGEAL SPASM [None]
